FAERS Safety Report 6994344-7 (Version None)
Quarter: 2010Q3

REPORT INFORMATION
  Report Type: 
  Country: None (occurrence: None)
  Receive Date: 20100917
  Receipt Date: 20100908
  Transmission Date: 20110219
  Serious: No
  Sender: FDA-Public Use
  Company Number: US-PFIZER INC-2010114938

PATIENT
  Sex: Male

DRUGS (7)
  1. TOVIAZ [Suspect]
     Indication: HYPERTONIC BLADDER
     Dosage: 4 MG, DAILY
     Route: 048
     Dates: start: 20100904
  2. ALPHAGAN [Concomitant]
     Indication: GLAUCOMA
     Dosage: UNK
  3. XALATAN [Concomitant]
     Indication: GLAUCOMA
     Dosage: UNK
  4. VITAMIN B1 TAB [Concomitant]
     Dosage: UNK
  5. FOLIC ACID [Concomitant]
     Dosage: UNK
  6. FUROSEMIDE [Concomitant]
     Dosage: UNK
  7. WARFARIN [Concomitant]
     Dosage: 1 MG, 2X/DAY

REACTIONS (1)
  - DIZZINESS [None]
